FAERS Safety Report 21479569 (Version 1)
Quarter: 2022Q4

REPORT INFORMATION
  Report Type: Spontaneous
  Country: CO (occurrence: CO)
  Receive Date: 20221019
  Receipt Date: 20221019
  Transmission Date: 20230113
  Serious: Yes (Life-Threatening, Hospitalization, Other)
  Sender: FDA-Public Use
  Company Number: CO-AMGEN-COLSP2022174920

PATIENT
  Age: 83 Year
  Sex: Male
  Weight: 49 kg

DRUGS (6)
  1. MVASI [Suspect]
     Active Substance: BEVACIZUMAB-AWWB
     Indication: Colon cancer
     Dosage: 270 MILLIGRAM , DAY 1 AND 15
     Route: 065
     Dates: start: 20220506
  2. FLUOROURACIL\LEUCOVORIN CALCIUM\OXALIPLATIN [Concomitant]
     Active Substance: FLUOROURACIL\LEUCOVORIN CALCIUM\OXALIPLATIN
     Dosage: UNK
  3. OXALIPLATIN [Concomitant]
     Active Substance: OXALIPLATIN
     Indication: Colon cancer
     Dosage: 110 MILLIGRAM, DAY 1 AND 15
     Dates: start: 20220506
  4. LEUCOVORIN CALCIUM [Concomitant]
     Active Substance: LEUCOVORIN CALCIUM
     Indication: Colon cancer
     Dosage: 600 MILLIGRAM, DAY 1 AND 15
     Dates: start: 20220506
  5. FLUOROURACIL [Concomitant]
     Active Substance: FLUOROURACIL
     Indication: Colon cancer
     Dosage: 600 MILLIGRAM, DAY 1 AND 15
     Dates: start: 20220506
  6. FLUOROURACIL [Concomitant]
     Active Substance: FLUOROURACIL
     Dosage: 3500 MILLIGRAM DAY 1 AND 15
     Dates: start: 20220506

REACTIONS (4)
  - Gastric ulcer perforation [Recovering/Resolving]
  - Peritonitis [Recovering/Resolving]
  - Peritoneal adhesions [Recovering/Resolving]
  - Catheter site pain [Not Recovered/Not Resolved]

NARRATIVE: CASE EVENT DATE: 20221001
